FAERS Safety Report 7969594-3 (Version None)
Quarter: 2011Q4

REPORT INFORMATION
  Report Type: 
  Country: None (occurrence: None)
  Receive Date: 20111212
  Receipt Date: 20111207
  Transmission Date: 20120403
  Serious: Yes (Other)
  Sender: FDA-Public Use
  Company Number: US-PFIZER INC-2011298871

PATIENT
  Sex: Male

DRUGS (4)
  1. COREG [Concomitant]
     Dosage: UNK
  2. COUMADIN [Concomitant]
  3. AMIODARONE HCL [Suspect]
     Dosage: CURRENTLY AT 100 MG A DAY
     Dates: start: 20040101
  4. ISOSORBIDE [Concomitant]

REACTIONS (3)
  - PULMONARY FUNCTION TEST DECREASED [None]
  - EJECTION FRACTION DECREASED [None]
  - HERPES ZOSTER [None]
